FAERS Safety Report 6213006-7 (Version None)
Quarter: 2009Q2

REPORT INFORMATION
  Report Type: 
  Country: None (occurrence: None)
  Receive Date: 20090528
  Receipt Date: 20090302
  Transmission Date: 20091009
  Serious: Yes (Hospitalization, Other)
  Sender: FDA-Public Use
  Company Number: 180496USA

PATIENT
  Age: 68 Year
  Sex: Female

DRUGS (2)
  1. CEPHALEXIN [Suspect]
     Indication: LOCALISED INFECTION
     Dosage: 1500 MG (500 MG, 3 IN 1 D), ORAL
     Route: 048
     Dates: start: 20080827
  2. PANTOPRAZOLE SODIUM [Concomitant]

REACTIONS (8)
  - ABDOMINAL PAIN [None]
  - BACTERIA STOOL IDENTIFIED [None]
  - DIARRHOEA [None]
  - FUNGAL INFECTION [None]
  - KIDNEY INFECTION [None]
  - PAIN [None]
  - RASH [None]
  - WHITE BLOOD CELL COUNT INCREASED [None]
